FAERS Safety Report 5928543-X (Version None)
Quarter: 2008Q4

REPORT INFORMATION
  Report Type: 
  Country: None (occurrence: None)
  Receive Date: 20081023
  Receipt Date: 20081021
  Transmission Date: 20090506
  Serious: Yes (Hospitalization, Other)
  Sender: FDA-Public Use
  Company Number: SE-WYE-G02367608

PATIENT
  Age: 83 Year
  Sex: Male

DRUGS (2)
  1. EFFEXOR [Suspect]
     Indication: DEPRESSION
     Dates: start: 20080701
  2. EFFEXOR [Suspect]
     Dosage: UNSPECIFIED

REACTIONS (4)
  - CEREBRAL THROMBOSIS [None]
  - CONFUSIONAL STATE [None]
  - FALL [None]
  - FEMORAL NECK FRACTURE [None]
